FAERS Safety Report 20668183 (Version 2)
Quarter: 2022Q2

REPORT INFORMATION
  Report Type: Report from Study
  Country: MX (occurrence: MX)
  Receive Date: 20220404
  Receipt Date: 20220504
  Transmission Date: 20220721
  Serious: Yes (Other)
  Sender: FDA-Public Use
  Company Number: MX-NOVARTISPH-NVSC2022MX075113

PATIENT
  Sex: Female

DRUGS (1)
  1. TASIGNA [Suspect]
     Active Substance: NILOTINIB
     Indication: Chronic myeloid leukaemia
     Dosage: UNK
     Route: 048

REACTIONS (8)
  - Diabetic foot [Unknown]
  - Arterial disorder [Unknown]
  - Cardiovascular disorder [Unknown]
  - Gastritis [Unknown]
  - Haemoglobin decreased [Unknown]
  - Weight decreased [Unknown]
  - Haematoma [Unknown]
  - Drug intolerance [Unknown]
